FAERS Safety Report 5162140-1 (Version None)
Quarter: 2006Q4

REPORT INFORMATION
  Report Type: 
  Country: None (occurrence: None)
  Receive Date: 20061121
  Receipt Date: 20061113
  Transmission Date: 20070319
  Serious: Yes (Death, Hospitalization)
  Sender: FDA-Public Use
  Company Number: AUWYE502113NOV06

PATIENT
  Age: 22 Year
  Sex: Male

DRUGS (2)
  1. EFFEXOR [Suspect]
  2. AURORIX (MOCLOBEMIDE, , 0) [Suspect]

REACTIONS (4)
  - DRUG ABUSER [None]
  - LOSS OF CONSCIOUSNESS [None]
  - OVERDOSE [None]
  - SEROTONIN SYNDROME [None]
